FAERS Safety Report 7456148-0 (Version None)
Quarter: 2011Q1

REPORT INFORMATION
  Report Type: 
  Country: None (occurrence: None)
  Receive Date: 20110302
  Receipt Date: 20110103
  Transmission Date: 20110831
  Serious: No
  Sender: FDA-Public Use
  Company Number: 024888

PATIENT
  Sex: Male

DRUGS (1)
  1. CIMZIA [Suspect]
     Indication: CROHN'S DISEASE
     Dosage: 400 MG  1X/4 WEEKS SUBCUTANEOUS
     Route: 058
     Dates: start: 20090311

REACTIONS (3)
  - PYREXIA [None]
  - UNEVALUABLE EVENT [None]
  - HEADACHE [None]
